FAERS Safety Report 6724570-3 (Version None)
Quarter: 2010Q2

REPORT INFORMATION
  Report Type: 
  Country: None (occurrence: None)
  Receive Date: 20100513
  Receipt Date: 20100430
  Transmission Date: 20101027
  Serious: Yes (Hospitalization)
  Sender: FDA-Public Use
  Company Number: US-PFIZER INC-2010042862

PATIENT
  Sex: Female

DRUGS (4)
  1. SUTENT [Suspect]
     Indication: HAEMANGIOPERICYTOMA
     Dosage: 50 MG, 1X/DAY
     Route: 048
     Dates: start: 20100224, end: 20100319
  2. FENTANYL [Concomitant]
     Dosage: UNK
  3. DILAUDID [Concomitant]
     Dosage: UNK
  4. LORAZEPAM [Concomitant]
     Dosage: UNK

REACTIONS (1)
  - HAEMORRHAGIC STROKE [None]
